FAERS Safety Report 15053966 (Version 1)
Quarter: 2018Q3

REPORT INFORMATION
  Report Type: Spontaneous
  Country: US (occurrence: US)
  Receive Date: 20180622
  Receipt Date: 20180622
  Transmission Date: 20181010
  Serious: No
  Sender: FDA-Public Use
  Company Number: US-AMNEAL PHARMACEUTICALS-2018AMN00287

PATIENT
  Sex: Female
  Weight: 74.83 kg

DRUGS (4)
  1. ESTRADIOL. [Suspect]
     Active Substance: ESTRADIOL
     Indication: VULVOVAGINAL DRYNESS
     Dosage: 10 MG, UNK
     Dates: start: 20180428
  2. BABY ASPIRIN [Concomitant]
     Active Substance: ASPIRIN
  3. SYNTHROID [Concomitant]
     Active Substance: LEVOTHYROXINE SODIUM
  4. LOSARTAN K TAB [Suspect]
     Active Substance: LOSARTAN POTASSIUM

REACTIONS (3)
  - Vulvovaginal dryness [None]
  - Inadequate lubrication [None]
  - Drug ineffective [Recovered/Resolved]
